FAERS Safety Report 9323748 (Version 1)
Quarter: 2013Q2

REPORT INFORMATION
  Report Type: Spontaneous
  Country: IT (occurrence: IT)
  Receive Date: 20130603
  Receipt Date: 20130603
  Transmission Date: 20140414
  Serious: Yes (Disabling)
  Sender: FDA-Public Use
  Company Number: PHHY2013IT055134

PATIENT
  Sex: Female

DRUGS (11)
  1. ZOMETA [Suspect]
     Indication: PLASMA CELL MYELOMA
     Dosage: 1 POS. UNIT MONTHLY
     Route: 042
     Dates: start: 20110915, end: 20130215
  2. THALIDOMIDE [Concomitant]
     Dosage: UNK UKN, UNK
     Dates: start: 201109, end: 201112
  3. TICLOPIDINE [Concomitant]
     Dosage: UNK UKN, UNK
     Dates: start: 201109, end: 201303
  4. TOTALIP [Concomitant]
     Dosage: UNK UKN, UNK
     Dates: start: 2003
  5. SIRIO [Concomitant]
     Dosage: UNK UKN, UNK
     Dates: start: 2005
  6. QUINAZIDE [Concomitant]
     Dosage: UNK UKN, UNK
  7. LOBIVON [Concomitant]
     Dosage: UNK UKN, UNK
  8. CARDIRENE [Concomitant]
     Dosage: UNK UKN, UNK
  9. DELTACORTENE [Concomitant]
     Dosage: 25 MG, UNK
  10. REVLIMID [Concomitant]
     Dosage: 25 MG, UNK
     Dates: start: 201203, end: 201303
  11. MIRAPEXIN [Concomitant]
     Dosage: UNK UKN, UNK
     Dates: start: 2005

REACTIONS (1)
  - Osteonecrosis of jaw [Not Recovered/Not Resolved]
